FAERS Safety Report 16749882 (Version 1)
Quarter: 2019Q3

REPORT INFORMATION
  Report Type: Report from Study
  Country: US (occurrence: US)
  Receive Date: 20190828
  Receipt Date: 20190828
  Transmission Date: 20191005
  Serious: Yes (Hospitalization, Other)
  Sender: FDA-Public Use
  Company Number: US-JNJFOC-20190829918

PATIENT
  Sex: Male

DRUGS (1)
  1. IMBRUVICA [Suspect]
     Active Substance: IBRUTINIB
     Indication: WALDENSTROM^S MACROGLOBULINAEMIA
     Dosage: UNK UNK, QD
     Route: 048
     Dates: start: 20151031

REACTIONS (5)
  - Cardiac failure [Not Recovered/Not Resolved]
  - Pericardial haemorrhage [Unknown]
  - Pericarditis [Unknown]
  - Cardiac tamponade [Unknown]
  - Haemothorax [Unknown]
